FAERS Safety Report 9219308 (Version 1)
Quarter: 2013Q2

REPORT INFORMATION
  Report Type: Spontaneous
  Country: US (occurrence: None)
  Receive Date: 20130404
  Receipt Date: 20130404
  Transmission Date: 20140414
  Serious: Yes (Other)
  Sender: FDA-Public Use
  Company Number: 2013US001386

PATIENT
  Age: 62 Year
  Sex: Female
  Weight: 60 kg

DRUGS (7)
  1. ICLUSIG [Suspect]
     Indication: CHRONIC MYELOID LEUKAEMIA
     Route: 048
     Dates: start: 20130109
  2. SYNTHROID (LEVOTHYROXINE SODIUM) [Concomitant]
  3. VALTREX [Concomitant]
  4. METOPROLOL [Concomitant]
  5. ONDANSETRON [Concomitant]
  6. CRESTOR [Concomitant]
  7. BACTRIM [Concomitant]

REACTIONS (1)
  - Skin exfoliation [None]
